FAERS Safety Report 5070484-7 (Version None)
Quarter: 2006Q3

REPORT INFORMATION
  Report Type: 
  Country: None (occurrence: None)
  Receive Date: 20060804
  Receipt Date: 20060724
  Transmission Date: 20061208
  Serious: Yes (Hospitalization)
  Sender: FDA-Public Use
  Company Number: FR-ABBOTT-06P-056-0338783-00

PATIENT
  Sex: Female
  Weight: 106 kg

DRUGS (7)
  1. HUMIRA [Suspect]
     Indication: RHEUMATOID ARTHRITIS
     Route: 058
     Dates: start: 20040423, end: 20050917
  2. METHOTREXATE SODIUM [Concomitant]
     Indication: RHEUMATOID ARTHRITIS
     Dates: start: 20040401, end: 20051001
  3. PREDNISONE TAB [Concomitant]
     Indication: RHEUMATOID ARTHRITIS
     Dates: start: 20040101
  4. NOCTRAN 10 [Concomitant]
     Indication: ANXIETY
     Dates: start: 19830101
  5. OXAZEPAM [Concomitant]
     Indication: ANXIETY
  6. TOPALGIC [Concomitant]
     Indication: RHEUMATOID ARTHRITIS
     Dates: start: 20040101
  7. HUMIRA [Concomitant]
     Indication: RHEUMATOID ARTHRITIS
     Route: 058
     Dates: start: 20041118

REACTIONS (1)
  - STAPHYLOCOCCAL OSTEOMYELITIS [None]
